FAERS Safety Report 11839495 (Version 3)
Quarter: 2017Q3

REPORT INFORMATION
  Report Type: Spontaneous
  Country: JP (occurrence: JP)
  Receive Date: 20151216
  Receipt Date: 20170926
  Transmission Date: 20171127
  Serious: Yes (Life-Threatening, Other)
  Sender: FDA-Public Use
  Company Number: PHJP2015JP022531

PATIENT
  Age: 44 Year
  Sex: Female

DRUGS (4)
  1. GLIVEC [Suspect]
     Active Substance: IMATINIB MESYLATE
     Indication: CHRONIC MYELOID LEUKAEMIA
     Dosage: 600 MG, QD
     Route: 048
     Dates: start: 200912, end: 201109
  2. GLIVEC [Interacting]
     Active Substance: IMATINIB MESYLATE
     Dosage: 400 MG, QD
     Route: 048
     Dates: end: 201109
  3. GLIVEC [Interacting]
     Active Substance: IMATINIB MESYLATE
     Dosage: 300 MG, QD
     Route: 048
     Dates: start: 201109, end: 201112
  4. GLIVEC [Interacting]
     Active Substance: IMATINIB MESYLATE
     Dosage: 400 MG, QD
     Route: 048
     Dates: start: 201112, end: 201210

REACTIONS (8)
  - Chronic myeloid leukaemia [Unknown]
  - Myalgia [Unknown]
  - Malignant neoplasm progression [Unknown]
  - Full blood count decreased [Recovered/Resolved]
  - Electrocardiogram QT prolonged [Recovered/Resolved]
  - Drug intolerance [Unknown]
  - Electrocardiogram QT prolonged [Unknown]
  - Drug interaction [Unknown]

NARRATIVE: CASE EVENT DATE: 200912
